FAERS Safety Report 9707099 (Version 1)
Quarter: 2013Q4

REPORT INFORMATION
  Report Type: Spontaneous
  Country: US (occurrence: US)
  Receive Date: 20131125
  Receipt Date: 20131125
  Transmission Date: 20140711
  Serious: No
  Sender: FDA-Public Use
  Company Number: US-PFIZER INC-2013336223

PATIENT
  Sex: Female

DRUGS (3)
  1. LYRICA [Suspect]
     Indication: DIABETIC NEUROPATHY
     Dosage: 1 DF, 2X/DAY
     Dates: start: 2013, end: 2013
  2. LYRICA [Suspect]
     Indication: FIBROMYALGIA
     Dosage: 2 DF, 2X/DAY
     Dates: start: 2013
  3. LYRICA [Suspect]
     Indication: RHEUMATOID ARTHRITIS

REACTIONS (3)
  - Off label use [Unknown]
  - Dizziness [Unknown]
  - Somnolence [Unknown]
